FAERS Safety Report 16939357 (Version 5)
Quarter: 2020Q2

REPORT INFORMATION
  Report Type: Report from Study
  Country: IT (occurrence: IT)
  Receive Date: 20191021
  Receipt Date: 20200403
  Transmission Date: 20200713
  Serious: Yes (Hospitalization)
  Sender: FDA-Public Use
  Company Number: IT-ROCHE-2429987

PATIENT
  Age: 39 Year
  Sex: Female
  Weight: 52 kg

DRUGS (8)
  1. ATEZOLIZUMAB. [Suspect]
     Active Substance: ATEZOLIZUMAB
     Indication: TRIPLE NEGATIVE BREAST CANCER
     Dosage: MOST RECENT DOSE OF ATEZOLIZUMAB: 24/SEP/2019
     Route: 042
     Dates: start: 20181213
  2. EPIRUBICIN [Suspect]
     Active Substance: EPIRUBICIN
     Indication: TRIPLE NEGATIVE BREAST CANCER
     Dosage: MOST RECENT DOSE OF EPIRUBICIN: 18/APR/2019
     Route: 042
     Dates: start: 20190306
  3. FILGRASTIM [Suspect]
     Active Substance: FILGRASTIM
     Route: 058
     Dates: start: 20190406, end: 20190413
  4. FILGRASTIM [Suspect]
     Active Substance: FILGRASTIM
     Route: 058
     Dates: start: 20190308, end: 20190315
  5. CYCLOPHOSPHAMIDE. [Suspect]
     Active Substance: CYCLOPHOSPHAMIDE
     Indication: TRIPLE NEGATIVE BREAST CANCER
     Dosage: MOST RECENT DOSE OF CYCLOPHOSPHAMIDE: 18/APR/2019
     Route: 042
     Dates: start: 20190306
  6. FILGRASTIM [Suspect]
     Active Substance: FILGRASTIM
     Indication: TRIPLE NEGATIVE BREAST CANCER
     Route: 058
     Dates: start: 20190322, end: 20190329
  7. PACLITAXEL. [Suspect]
     Active Substance: PACLITAXEL
     Indication: TRIPLE NEGATIVE BREAST CANCER
     Dosage: MOST RECENT DOSE OF PACLITAXEL: 27/FEB/2019
     Route: 042
     Dates: start: 20181213
  8. FILGRASTIM [Suspect]
     Active Substance: FILGRASTIM
     Route: 058
     Dates: start: 20190410, end: 20190417

REACTIONS (1)
  - Acute myocardial infarction [Recovered/Resolved with Sequelae]

NARRATIVE: CASE EVENT DATE: 20190929
